FAERS Safety Report 5789287-0 (Version None)
Quarter: 2008Q2

REPORT INFORMATION
  Report Type: 
  Country: None (occurrence: None)
  Receive Date: 20080626
  Receipt Date: 20080104
  Transmission Date: 20081010
  Serious: No
  Sender: FDA-Public Use
  Company Number: US-ASTRAZENECA-2008UW00329

PATIENT
  Age: 73 Year
  Sex: Male
  Weight: 105.2 kg

DRUGS (12)
  1. PULMICORT RESPULES [Suspect]
     Indication: ASTHMA
     Route: 055
  2. PULMICORT RESPULES [Suspect]
     Indication: EMPHYSEMA
     Route: 055
  3. PLAVIX [Concomitant]
  4. ZOCOR [Concomitant]
  5. FLOMAX [Concomitant]
  6. RANITIDINE HCL [Concomitant]
  7. THEOPHYLLINE [Concomitant]
  8. DUONEB [Concomitant]
  9. XOPENEX [Concomitant]
  10. PREDNISONE [Concomitant]
  11. PREDNISONE [Concomitant]
  12. PREDNISONE [Concomitant]

REACTIONS (2)
  - GLAUCOMA [None]
  - WEIGHT INCREASED [None]
